FAERS Safety Report 19959270 (Version 1)
Quarter: 2021Q4

REPORT INFORMATION
  Report Type: Spontaneous
  Country: US (occurrence: US)
  Receive Date: 20211014
  Receipt Date: 20211014
  Transmission Date: 20220303
  Serious: Yes (Hospitalization)
  Sender: FDA-Public Use
  Company Number: None

PATIENT
  Age: 34 Year
  Sex: Female

DRUGS (2)
  1. OCREVUS [Suspect]
     Active Substance: OCRELIZUMAB
     Indication: Multiple sclerosis
     Dosage: ?          OTHER FREQUENCY:EVERY 6 MONTHS;
     Route: 042
     Dates: start: 20171206
  2. DALFAMPRIDINE [Suspect]
     Active Substance: DALFAMPRIDINE
     Indication: Multiple sclerosis
     Dosage: ?          OTHER FREQUENCY:EVERY 12 HOURS;
     Route: 048
     Dates: start: 20201016

REACTIONS (1)
  - Pyrexia [None]

NARRATIVE: CASE EVENT DATE: 20211013
